FAERS Safety Report 9764934 (Version 1)
Quarter: 2013Q4

REPORT INFORMATION
  Report Type: Spontaneous
  Country: US (occurrence: US)
  Receive Date: 20131217
  Receipt Date: 20131217
  Transmission Date: 20140711
  Serious: No
  Sender: FDA-Public Use
  Company Number: US-BIOGENIDEC-2013BI112055

PATIENT
  Sex: Female

DRUGS (4)
  1. TECFIDERA [Suspect]
     Indication: MULTIPLE SCLEROSIS
     Dates: end: 20130914
  2. AVONEX [Concomitant]
     Indication: MULTIPLE SCLEROSIS
     Route: 030
  3. COPAXONE [Concomitant]
     Indication: MULTIPLE SCLEROSIS
  4. COPAXONE [Concomitant]
     Indication: MULTIPLE SCLEROSIS

REACTIONS (5)
  - Cranial nerve operation [Unknown]
  - Brain operation [Unknown]
  - Drug ineffective [Unknown]
  - Skin burning sensation [Unknown]
  - Flushing [Unknown]
